FAERS Safety Report 9920256 (Version 1)
Quarter: 2014Q1

REPORT INFORMATION
  Report Type: Spontaneous
  Country: US (occurrence: US)
  Receive Date: 20140224
  Receipt Date: 20140224
  Transmission Date: 20141002
  Serious: Yes (Other)
  Sender: FDA-Public Use
  Company Number: PHEH2014US003208

PATIENT
  Sex: Female

DRUGS (6)
  1. LOTREL [Suspect]
     Dosage: 10/40 MG, UNK
  2. RESPITOL [Suspect]
     Dosage: UNK UKN, UNK
  3. THORAZINE [Concomitant]
     Dosage: UNK UKN, UNK
  4. TEGRETOL [Concomitant]
     Dosage: UNK UKN, UNK
  5. SIMVASTATIN [Concomitant]
     Dosage: UNK UKN, UNK
  6. INSULIN [Concomitant]
     Dosage: 3 PILLS, UKN

REACTIONS (6)
  - Bone marrow failure [Unknown]
  - Red blood cell abnormality [Unknown]
  - White blood cell disorder [Unknown]
  - Weight increased [Unknown]
  - Feeling abnormal [Unknown]
  - Asthenia [Unknown]
